FAERS Safety Report 9237473 (Version 1)
Quarter: 2013Q2

REPORT INFORMATION
  Report Type: Spontaneous
  Country: US (occurrence: US)
  Receive Date: 20130417
  Receipt Date: 20130417
  Transmission Date: 20140414
  Serious: No
  Sender: FDA-Public Use
  Company Number: US-PFIZER INC-2013116140

PATIENT
  Age: 53 Year
  Sex: Male
  Weight: 74.8 kg

DRUGS (1)
  1. XALKORI [Suspect]
     Indication: LUNG CANCER METASTATIC
     Dosage: 250 MG, 2X/DAY
     Dates: start: 201112, end: 201304

REACTIONS (2)
  - Disease progression [Unknown]
  - Lung cancer metastatic [Unknown]
